FAERS Safety Report 7075035-3 (Version None)
Quarter: 2010Q4

REPORT INFORMATION
  Report Type: 
  Country: None (occurrence: None)
  Receive Date: 20101029
  Receipt Date: 20100224
  Transmission Date: 20110411
  Serious: No
  Sender: FDA-Public Use
  Company Number: US-WYE-H13821510

PATIENT
  Age: 58 Year
  Sex: Male
  Weight: 68.1 kg

DRUGS (1)
  1. LORATADINE AND PSEUDOEPHEDRINE SULFATE [Suspect]
     Indication: HYPERSENSITIVITY
     Route: 048
     Dates: start: 20100220, end: 20100220

REACTIONS (2)
  - INSOMNIA [None]
  - MALAISE [None]
